FAERS Safety Report 17927837 (Version 2)
Quarter: 2020Q2

REPORT INFORMATION
  Report Type: Spontaneous
  Country: US (occurrence: US)
  Receive Date: 20200623
  Receipt Date: 20200627
  Transmission Date: 20200714
  Serious: Yes (Life-Threatening, Hospitalization, Other)
  Sender: FDA-Public Use
  Company Number: US-DRREDDYS-USA/USA/20/0124382

PATIENT
  Age: 53 Year
  Sex: Male
  Weight: 134.3 kg

DRUGS (6)
  1. CEFTRIAXONE. [Concomitant]
     Active Substance: CEFTRIAXONE
     Indication: ANTIBIOTIC THERAPY
     Dates: start: 202003
  2. AZITHROMYCIN ANHYDROUS. [Concomitant]
     Active Substance: AZITHROMYCIN ANHYDROUS
     Indication: ANTIBIOTIC THERAPY
     Dates: start: 202003
  3. CISATRACURIUM. [Concomitant]
     Active Substance: CISATRACURIUM
     Indication: ACUTE RESPIRATORY DISTRESS SYNDROME
     Dates: start: 202003
  4. METOPROLOL SUCCINATE. [Concomitant]
     Active Substance: METOPROLOL SUCCINATE
     Indication: HEART RATE IRREGULAR
     Dates: start: 202003
  5. FUROSEMIDE. [Concomitant]
     Active Substance: FUROSEMIDE
     Indication: ANTIBIOTIC THERAPY
     Dates: start: 202003
  6. HEPARIN SODIUM. [Suspect]
     Active Substance: HEPARIN SODIUM
     Indication: ATRIAL FIBRILLATION
     Dosage: UNFRACTIONATED
     Dates: start: 20200325, end: 20200404

REACTIONS (3)
  - Heparin-induced thrombocytopenia [Recovered/Resolved]
  - Heparin-induced thrombocytopenia [Recovered/Resolved]
  - Skin necrosis [Recovered/Resolved]

NARRATIVE: CASE EVENT DATE: 20200402
